FAERS Safety Report 4447596-1 (Version None)
Quarter: 2004Q3

REPORT INFORMATION
  Report Type: 
  Country: None (occurrence: None)
  Receive Date: 20040823
  Receipt Date: 20040622
  Transmission Date: 20050211
  Serious: No
  Sender: FDA-Public Use
  Company Number: PHEH2004US06780

PATIENT
  Sex: Female

DRUGS (1)
  1. ZELNORM [Suspect]
     Indication: IRRITABLE BOWEL SYNDROME
     Dosage: ORAL
     Route: 048
     Dates: start: 20040401

REACTIONS (1)
  - HAIR GROWTH ABNORMAL [None]
